FAERS Safety Report 4902975-0 (Version None)
Quarter: 2006Q1

REPORT INFORMATION
  Report Type: 
  Country: None (occurrence: None)
  Receive Date: 20060207
  Receipt Date: 20051229
  Transmission Date: 20060701
  Serious: Yes (Hospitalization, Other)
  Sender: FDA-Public Use
  Company Number: US-MERCK-0601USA00025

PATIENT
  Age: 54 Year
  Sex: Male
  Weight: 175 kg

DRUGS (15)
  1. VIOXX [Suspect]
     Indication: ARTHRITIS
     Route: 048
     Dates: start: 20010401, end: 20040801
  2. VIOXX [Suspect]
     Indication: BACK PAIN
     Route: 048
     Dates: start: 20010401, end: 20040801
  3. XANAX [Concomitant]
     Route: 065
  4. LASIX [Concomitant]
     Route: 065
  5. COZAAR [Concomitant]
     Route: 065
  6. ACTOS [Concomitant]
     Route: 065
  7. ATENOLOL [Concomitant]
     Route: 065
  8. HYTRIN [Concomitant]
     Route: 065
  9. GLUCOTROL [Concomitant]
     Route: 065
  10. GLUCOPHAGE [Concomitant]
     Route: 065
  11. PRINZIDE [Concomitant]
     Route: 065
  12. VERAPAMIL [Concomitant]
     Route: 065
  13. AXID [Concomitant]
     Route: 065
  14. POTASSIUM CHLORIDE [Concomitant]
     Route: 065
  15. [THERAPY UNSPECIFIED] [Concomitant]
     Route: 065

REACTIONS (23)
  - ACCIDENT [None]
  - BENIGN PROSTATIC HYPERPLASIA [None]
  - CELLULITIS [None]
  - CORNEAL OEDEMA [None]
  - GLAUCOMA [None]
  - HYPERTENSION [None]
  - INGUINAL HERNIA [None]
  - MYALGIA [None]
  - PERIPHERAL VASCULAR DISORDER [None]
  - PROSTATE CANCER [None]
  - RENAL CYST [None]
  - RETINAL ARTERY OCCLUSION [None]
  - RETINAL ARTERY THROMBOSIS [None]
  - RETINAL DISORDER [None]
  - RETINAL NEOVASCULARISATION [None]
  - SKIN DISCOLOURATION [None]
  - SKIN ULCER [None]
  - SLEEP APNOEA SYNDROME [None]
  - STASIS DERMATITIS [None]
  - URETHRAL STENOSIS [None]
  - URINARY TRACT INFECTION [None]
  - VENOUS STASIS [None]
  - VISUAL ACUITY REDUCED [None]
